FAERS Safety Report 4748491-0 (Version None)
Quarter: 2005Q3

REPORT INFORMATION
  Report Type: 
  Country: None (occurrence: None)
  Receive Date: 20050818
  Receipt Date: 20050818
  Transmission Date: 20060218
  Serious: No
  Sender: FDA-Public Use
  Company Number: None

PATIENT

DRUGS (1)
  1. METFORMIN 500 MG IVAX PHARMACEUTICALS [Suspect]

REACTIONS (1)
  - MEDICATION ERROR [None]
